FAERS Safety Report 23702530 (Version 1)
Quarter: 2024Q2

REPORT INFORMATION
  Report Type: Spontaneous
  Country: US (occurrence: None)
  Receive Date: 20240402
  Receipt Date: 20240402
  Transmission Date: 20240715
  Serious: No
  Sender: FDA-Public Use
  Company Number: None

PATIENT
  Age: 12 Year
  Sex: Female

DRUGS (2)
  1. TOBRAMYCIN [Suspect]
     Active Substance: TOBRAMYCIN
     Indication: Lung disorder
     Dosage: 300MG TWICE DAILY INHALATION
     Route: 055
     Dates: start: 202303
  2. TOBRAMYCIN [Suspect]
     Active Substance: TOBRAMYCIN
     Indication: Encephalopathy

REACTIONS (1)
  - Respiratory tract infection viral [None]

NARRATIVE: CASE EVENT DATE: 20231205
